FAERS Safety Report 5547775-6 (Version None)
Quarter: 2007Q4

REPORT INFORMATION
  Report Type: 
  Country: None (occurrence: None)
  Receive Date: 20071211
  Receipt Date: 20070302
  Transmission Date: 20080405
  Serious: No
  Sender: FDA-Public Use
  Company Number: US-AMGEN-KDL213492

PATIENT
  Sex: Female

DRUGS (4)
  1. ENBREL [Suspect]
     Indication: RHEUMATOID ARTHRITIS
     Route: 058
     Dates: start: 20061226
  2. METHOTREXATE [Concomitant]
  3. PLAQUENIL [Concomitant]
     Dates: start: 20050101
  4. AZULFIDINE EN-TABS [Concomitant]

REACTIONS (2)
  - INJECTION SITE RASH [None]
  - OEDEMA PERIPHERAL [None]
